FAERS Safety Report 6922817-1 (Version None)
Quarter: 2010Q3

REPORT INFORMATION
  Report Type: 
  Country: None (occurrence: None)
  Receive Date: 20100813
  Receipt Date: 20100802
  Transmission Date: 20110219
  Serious: Yes (Disabling, Other)
  Sender: FDA-Public Use
  Company Number: US-PFIZER INC-2010097502

PATIENT
  Sex: Female
  Weight: 46.2 kg

DRUGS (6)
  1. LYRICA [Suspect]
     Indication: FIBROMYALGIA
     Dosage: 75 MG, UNK
     Route: 048
  2. DIAZEPAM [Concomitant]
     Indication: MUSCLE SPASMS
     Dosage: UNK
  3. DIAZEPAM [Concomitant]
     Indication: SPINAL DISORDER
  4. METHADONE [Concomitant]
     Indication: PAIN
     Dosage: UNK
  5. RESTORIL [Concomitant]
     Indication: SLEEP DISORDER
     Dosage: UNK
  6. PROGESTERONE [Concomitant]
     Indication: HORMONE REPLACEMENT THERAPY
     Dosage: UNK

REACTIONS (7)
  - ACCIDENT AT HOME [None]
  - BRONCHITIS [None]
  - DYSPNOEA [None]
  - FACE INJURY [None]
  - LOSS OF CONSCIOUSNESS [None]
  - MALAISE [None]
  - PERIORBITAL HAEMATOMA [None]
